APPROVED DRUG PRODUCT: NITROSTAT
Active Ingredient: NITROGLYCERIN
Strength: 0.4MG
Dosage Form/Route: TABLET;SUBLINGUAL
Application: N021134 | Product #002 | TE Code: AB
Applicant: VIATRIS SPECIALTY LLC
Approved: May 1, 2000 | RLD: Yes | RS: No | Type: RX